FAERS Safety Report 7441675-2 (Version None)
Quarter: 2011Q2

REPORT INFORMATION
  Report Type: 
  Country: None (occurrence: None)
  Receive Date: 20110404
  Receipt Date: 20110310
  Transmission Date: 20111010
  Serious: Yes (Other)
  Sender: FDA-Public Use
  Company Number: 2011027863

PATIENT
  Sex: Female
  Weight: 38.1022 kg

DRUGS (4)
  1. XANAX [Concomitant]
  2. ZEMAIRA [Suspect]
     Indication: ALPHA-1 ANTI-TRYPSIN DEFICIENCY
     Dosage: (60 MG/KG 1X/WEEK INTRAVENOUS (NOT OTHERWISE SPECIFI
     Route: 042
     Dates: start: 20090401
  3. ADVAIR DISKUS 100/50 [Concomitant]
  4. FLEXERIL [Concomitant]

REACTIONS (3)
  - WEIGHT DECREASED [None]
  - OESOPHAGEAL CANDIDIASIS [None]
  - DYSPHONIA [None]
